FAERS Safety Report 18448391 (Version 1)
Quarter: 2020Q4

REPORT INFORMATION
  Report Type: Spontaneous
  Country: US (occurrence: US)
  Receive Date: 20201030
  Receipt Date: 20201030
  Transmission Date: 20210114
  Serious: No
  Sender: FDA-Public Use
  Company Number: US-TEVA-2020-US-1842831

PATIENT
  Age: 46 Year
  Sex: Female
  Weight: 54.13 kg

DRUGS (1)
  1. ALPRAZOLAM ACTAVIS [Suspect]
     Active Substance: ALPRAZOLAM
     Indication: WOLFF-PARKINSON-WHITE SYNDROME
     Dosage: 4 MILLIGRAM DAILY;
     Route: 048

REACTIONS (5)
  - Vomiting [Unknown]
  - Drug ineffective [Unknown]
  - Product use in unapproved indication [Unknown]
  - Heart rate increased [Unknown]
  - Product substitution issue [Unknown]
